FAERS Safety Report 7414070-X (Version None)
Quarter: 2011Q2

REPORT INFORMATION
  Report Type: 
  Country: None (occurrence: None)
  Receive Date: 20110414
  Receipt Date: 20110412
  Transmission Date: 20111010
  Serious: Yes (Other)
  Sender: FDA-Public Use
  Company Number: US-PFIZER INC-2011080697

PATIENT
  Sex: Male
  Weight: 63.492 kg

DRUGS (2)
  1. ADVAIR HFA [Concomitant]
     Indication: CHRONIC OBSTRUCTIVE PULMONARY DISEASE
     Dosage: UNK
  2. CHANTIX [Suspect]
     Indication: SMOKING CESSATION THERAPY
     Dosage: 1 MG, 2X/DAY
     Route: 048
     Dates: start: 20110402

REACTIONS (5)
  - PAIN IN EXTREMITY [None]
  - MALAISE [None]
  - HALLUCINATION [None]
  - HEADACHE [None]
  - ARTHRALGIA [None]
